FAERS Safety Report 7618440-6 (Version None)
Quarter: 2011Q3

REPORT INFORMATION
  Report Type: 
  Country: None (occurrence: None)
  Receive Date: 20110718
  Receipt Date: 20110711
  Transmission Date: 20111222
  Serious: Yes (Hospitalization)
  Sender: FDA-Public Use
  Company Number: US-GENENTECH-320277

PATIENT
  Sex: Male
  Weight: 133.79 kg

DRUGS (3)
  1. ADVAIR DISKUS 100/50 [Concomitant]
     Indication: PRODUCT USED FOR UNKNOWN INDICATION
  2. SINGULAIR [Concomitant]
  3. XOLAIR [Suspect]
     Indication: ASTHMA
     Dosage: UNK
     Dates: end: 20110523

REACTIONS (3)
  - RASH [None]
  - LEUKOCYTOCLASTIC VASCULITIS [None]
  - BLOOD BLISTER [None]
